FAERS Safety Report 10053452 (Version 1)
Quarter: 2014Q2

REPORT INFORMATION
  Report Type: Spontaneous
  Country: US (occurrence: US)
  Receive Date: 20140402
  Receipt Date: 20140402
  Transmission Date: 20141212
  Serious: Yes (Life-Threatening, Hospitalization, Other)
  Sender: FDA-Public Use
  Company Number: US-JNJFOC-20140400711

PATIENT
  Age: 58 Year
  Sex: Male

DRUGS (2)
  1. RIVAROXABAN [Suspect]
     Indication: CEREBROVASCULAR ACCIDENT PROPHYLAXIS
     Route: 048
  2. RIVAROXABAN [Suspect]
     Indication: ATRIAL FIBRILLATION
     Route: 048

REACTIONS (11)
  - Cardiac perforation [Unknown]
  - Oesophageal fistula [Unknown]
  - Cardiac arrest [Recovered/Resolved]
  - Haematemesis [Unknown]
  - Anaemia [Unknown]
  - Encephalopathy [Unknown]
  - Pneumocephalus [Unknown]
  - Cerebellar haemorrhage [Unknown]
  - Septic embolus [Unknown]
  - Septic shock [Unknown]
  - Embolic stroke [Unknown]
